FAERS Safety Report 5759180-8 (Version None)
Quarter: 2008Q2

REPORT INFORMATION
  Report Type: 
  Country: None (occurrence: None)
  Receive Date: 20080602
  Receipt Date: 20080513
  Transmission Date: 20081010
  Serious: Yes (Other)
  Sender: FDA-Public Use
  Company Number: S08-FRA-01906-01

PATIENT
  Age: 81 Year
  Sex: Male

DRUGS (7)
  1. MEMANTINE HCL [Suspect]
     Indication: DEMENTIA ALZHEIMER'S TYPE
     Dosage: 20 MG QD PO
     Route: 048
     Dates: start: 20070521, end: 20080201
  2. PREVISCAN (FLUINDIONE) [Concomitant]
  3. INEXIUM (ESOMEPRAZOLE) [Concomitant]
  4. PRAVASTATIN [Concomitant]
  5. COAPROVEL [Concomitant]
  6. DIGOXIN [Concomitant]
  7. ALLOPURINOL [Concomitant]

REACTIONS (1)
  - GAMMA-GLUTAMYLTRANSFERASE INCREASED [None]
